FAERS Safety Report 9908564 (Version 1)
Quarter: 2014Q1

REPORT INFORMATION
  Report Type: Spontaneous
  Country: US (occurrence: None)
  Receive Date: 20140214
  Receipt Date: 20140214
  Transmission Date: 20141002
  Serious: Yes (Hospitalization)
  Sender: FDA-Public Use
  Company Number: None

PATIENT
  Age: 70 Year
  Sex: Female
  Weight: 78.8 kg

DRUGS (10)
  1. GLYBURIDE [Suspect]
     Indication: DIABETES MELLITUS
     Dosage: CHRONIC ?5MG DAILY PO
     Route: 048
  2. TRAMADOL [Concomitant]
  3. PRAVASTATIN [Concomitant]
  4. SERTRALINE [Concomitant]
  5. METOPROLOL [Concomitant]
  6. FUROSEMIDE [Concomitant]
  7. AMITIZA [Concomitant]
  8. DIVLPROEX [Concomitant]
  9. LOSARTAN [Concomitant]
  10. FLUTICASONE [Concomitant]

REACTIONS (3)
  - Hypoglycaemia [None]
  - Renal failure acute [None]
  - Hypophagia [None]
